FAERS Safety Report 9417167 (Version 2)
Quarter: 2013Q3

REPORT INFORMATION
  Report Type: Spontaneous
  Country: IL (occurrence: None)
  Receive Date: 20130722
  Receipt Date: 20130729
  Transmission Date: 20140515
  Serious: Yes (Death, Life-Threatening, Hospitalization, Other)
  Sender: FDA-Public Use
  Company Number: UTC-035327

PATIENT
  Age: 67 Year
  Sex: Male
  Weight: 74 kg

DRUGS (1)
  1. REMODULIN [Suspect]
     Indication: PULMONARY VASCULAR DISORDER
     Route: 058
     Dates: start: 20130520, end: 20130627

REACTIONS (9)
  - Cardiogenic shock [None]
  - Renal failure chronic [None]
  - Urinary tract infection [None]
  - Endocarditis [None]
  - Condition aggravated [None]
  - Right ventricular failure [None]
  - Implant site infection [None]
  - Renal failure chronic [None]
  - Bacterial infection [None]
